FAERS Safety Report 4499334-4 (Version None)
Quarter: 2004Q4

REPORT INFORMATION
  Report Type: 
  Country: None (occurrence: None)
  Receive Date: 20040928
  Receipt Date: 20040812
  Transmission Date: 20050328
  Serious: No
  Sender: FDA-Public Use
  Company Number: 04P-163-0270338-00

PATIENT
  Age: 61 Year
  Sex: Female
  Weight: 48.0813 kg

DRUGS (8)
  1. HUMIRA [Suspect]
     Indication: RHEUMATOID ARTHRITIS
     Dosage: 40 MG, 1 IN 15 D, SUBCUTANEOUS
     Route: 058
     Dates: start: 20040615
  2. VICODIN [Concomitant]
  3. ALPRAZOLAM [Concomitant]
  4. PROGESTERONE [Concomitant]
  5. ESTROGENS CONJUGATED [Concomitant]
  6. LISINOPRIL [Concomitant]
  7. CARISOPRODOL [Concomitant]
  8. IMMUNITOL HERBAL PREPARATION [Concomitant]

REACTIONS (2)
  - DIARRHOEA [None]
  - PARAESTHESIA [None]
